FAERS Safety Report 15411276 (Version 3)
Quarter: 2018Q4

REPORT INFORMATION
  Report Type: Spontaneous
  Country: US (occurrence: US)
  Receive Date: 20180921
  Receipt Date: 20181207
  Transmission Date: 20190204
  Serious: No
  Sender: FDA-Public Use
  Company Number: US-PFIZER INC-2018376983

PATIENT
  Sex: Female

DRUGS (1)
  1. ZIPRASIDONE HCL [Suspect]
     Active Substance: ZIPRASIDONE HYDROCHLORIDE
     Dosage: UNK, (40MG/80MG)

REACTIONS (3)
  - Mood altered [Unknown]
  - Drug effect incomplete [Unknown]
  - Malaise [Unknown]
